FAERS Safety Report 11269630 (Version 1)
Quarter: 2015Q3

REPORT INFORMATION
  Report Type: Spontaneous
  Country: US (occurrence: US)
  Receive Date: 20150714
  Receipt Date: 20150714
  Transmission Date: 20151125
  Serious: Yes (Hospitalization, Other)
  Sender: FDA-Public Use
  Company Number: US-PFIZER INC-2015227131

PATIENT
  Age: 49 Year
  Sex: Male

DRUGS (6)
  1. DILANTIN [Suspect]
     Active Substance: PHENYTOIN
     Indication: PALPITATIONS
  2. ISOSORBIDE DINITRATE. [Concomitant]
     Active Substance: ISOSORBIDE DINITRATE
     Indication: PALPITATIONS
  3. ISOSORBIDE DINITRATE. [Concomitant]
     Active Substance: ISOSORBIDE DINITRATE
     Indication: ANGINA PECTORIS
     Dosage: 5 MG, EVERY 4 HRS
  4. DILANTIN [Suspect]
     Active Substance: PHENYTOIN
     Indication: ANGINA PECTORIS
     Dosage: 100 MG, EVERY 4 HRS
  5. PRONESTYL [Concomitant]
     Active Substance: PROCAINAMIDE HYDROCHLORIDE
     Indication: ANGINA PECTORIS
     Dosage: 375 MG, EVERY 4 HRS
  6. PRONESTYL [Concomitant]
     Active Substance: PROCAINAMIDE HYDROCHLORIDE
     Indication: PALPITATIONS

REACTIONS (20)
  - Toxicity to various agents [Recovered/Resolved]
  - Ataxia [Not Recovered/Not Resolved]
  - Hypotonia [Unknown]
  - Nystagmus [Unknown]
  - Head titubation [Unknown]
  - Confusional state [Unknown]
  - Disturbance in attention [Unknown]
  - Sensory disturbance [Recovered/Resolved]
  - Memory impairment [Recovered/Resolved]
  - Romberg test positive [Unknown]
  - Dysarthria [Recovered/Resolved]
  - Diplopia [Unknown]
  - Anticonvulsant drug level above therapeutic [Recovered/Resolved]
  - Personality change [Recovered/Resolved]
  - Dizziness [Unknown]
  - Tremor [Unknown]
  - Dysaesthesia [Recovered/Resolved]
  - Gait disturbance [Recovered/Resolved]
  - Areflexia [Unknown]
  - Neuropathy peripheral [Unknown]
